FAERS Safety Report 11264327 (Version 1)
Quarter: 2015Q3

REPORT INFORMATION
  Report Type: Spontaneous
  Country: US (occurrence: US)
  Receive Date: 20150713
  Receipt Date: 20150713
  Transmission Date: 20151125
  Serious: No
  Sender: FDA-Public Use
  Company Number: US-JNJFOC-20150605775

PATIENT

DRUGS (6)
  1. CALCIUM [Concomitant]
     Active Substance: CALCIUM
     Route: 065
  2. QUERCETIN [Concomitant]
     Active Substance: QUERCETIN
     Route: 065
  3. VITAMIN B [Concomitant]
     Active Substance: VITAMIN B
     Route: 065
  4. TURMERIC [Concomitant]
     Active Substance: TURMERIC
     Route: 065
  5. REMICADE [Suspect]
     Active Substance: INFLIXIMAB
     Indication: OSTEOARTHRITIS
     Route: 042
  6. MAGNESIUM [Concomitant]
     Active Substance: MAGNESIUM
     Route: 065

REACTIONS (2)
  - Unevaluable event [Unknown]
  - Product use issue [Unknown]
